FAERS Safety Report 11094106 (Version 2)
Quarter: 2015Q3

REPORT INFORMATION
  Report Type: Spontaneous
  Country: JP (occurrence: JP)
  Receive Date: 20150506
  Receipt Date: 20150803
  Transmission Date: 20151125
  Serious: Yes (Hospitalization)
  Sender: FDA-Public Use
  Company Number: JP-WATSON-2015-09359

PATIENT
  Age: 86 Year
  Sex: Male

DRUGS (14)
  1. ZYTIGA [Concomitant]
     Active Substance: ABIRATERONE ACETATE
     Indication: PROSTATE CANCER
     Dosage: 1000 MG, DAILY
     Route: 048
  2. CALCIUM POLYSTYRENE RESIN [Concomitant]
     Indication: RENAL FAILURE
     Dosage: 50 G, DAILY
     Route: 048
  3. URSO [Concomitant]
     Active Substance: URSODIOL
     Indication: PRODUCT USED FOR UNKNOWN INDICATION
     Dosage: 200 MG, DAILY
     Route: 048
  4. SOLMIRAN [Concomitant]
     Indication: RENAL FAILURE
     Dosage: 1200 MG, DAILY
  5. RAPAFLO [Suspect]
     Active Substance: SILODOSIN
     Indication: DYSURIA
     Dosage: 8 MG, DAILY
     Route: 048
     Dates: start: 20090427
  6. NATRIX [Concomitant]
     Active Substance: INDAPAMIDE
     Indication: RENAL FAILURE
     Dosage: 25 MG, DAILY
     Route: 048
  7. MAGMITT [Concomitant]
     Active Substance: MAGNESIUM OXIDE
     Indication: CONSTIPATION
     Dosage: 1000 MG, DAILY
     Route: 048
  8. SANMEL [Concomitant]
     Indication: GASTRIC ULCER HAEMORRHAGE
     Dosage: 160 ML, DAILY
     Route: 048
     Dates: start: 20150422
  9. AZILSARTAN [Concomitant]
     Active Substance: AZILSARTAN KAMEDOXOMIL
     Indication: HYPERTENSION
     Dosage: 1 DF, DAILY
     Route: 048
  10. OMEPRAZOLE. [Concomitant]
     Active Substance: OMEPRAZOLE
     Indication: GASTRIC ULCER HAEMORRHAGE
     Dosage: 40 MG, DAILY
     Route: 042
     Dates: start: 20150422, end: 20150427
  11. NEXIUM [Concomitant]
     Active Substance: ESOMEPRAZOLE MAGNESIUM
     Indication: GASTRIC ULCER HAEMORRHAGE
     Dosage: 20 MG, DAILY
     Route: 048
     Dates: start: 20150428
  12. PREDONINE [Suspect]
     Active Substance: PREDNISOLONE\PREDNISOLONE ACETATE\PREDNISOLONE SODIUM SUCCINATE
     Indication: PROSTATE CANCER
     Dosage: UNK UNK, UNKNOWN
     Route: 048
  13. PROMAC                             /00024401/ [Concomitant]
     Active Substance: NITROFURANTOIN
     Indication: GASTRIC ULCER
     Dosage: 150 UNK, DAILY
     Route: 048
  14. MECOBALAMIN [Concomitant]
     Active Substance: METHYLCOBALAMIN
     Indication: PRODUCT USED FOR UNKNOWN INDICATION
     Dosage: 1000 MG, DAILY
     Route: 048

REACTIONS (1)
  - Gastric ulcer haemorrhage [Recovering/Resolving]

NARRATIVE: CASE EVENT DATE: 20150422
